FAERS Safety Report 11734313 (Version 2)
Quarter: 2015Q4

REPORT INFORMATION
  Report Type: Report from Study
  Country: US (occurrence: US)
  Receive Date: 20151113
  Receipt Date: 20151201
  Transmission Date: 20160304
  Serious: Yes (Hospitalization)
  Sender: FDA-Public Use
  Company Number: US-BIOGENIDEC-2006BI016391

PATIENT
  Age: 59 Year
  Sex: Female

DRUGS (9)
  1. VITAMIN [Concomitant]
     Active Substance: VITAMINS
     Indication: PRODUCT USED FOR UNKNOWN INDICATION
  2. BACLOFEN. [Concomitant]
     Active Substance: BACLOFEN
  3. GLUCOSAMINE [Concomitant]
     Active Substance: GLUCOSAMINE
  4. TYSABRI [Suspect]
     Active Substance: NATALIZUMAB
     Indication: MULTIPLE SCLEROSIS
     Route: 042
     Dates: start: 20061025
  5. TYLENOL [Concomitant]
     Active Substance: ACETAMINOPHEN
     Indication: BACK PAIN
  6. ESTRACE [Concomitant]
     Active Substance: ESTRADIOL
  7. SENEKOT [Concomitant]
  8. FOSAMAX [Concomitant]
     Active Substance: ALENDRONATE SODIUM
     Indication: OSTEOPENIA
  9. OXYBUTIN [Concomitant]
     Active Substance: OXYBUTYNIN

REACTIONS (17)
  - Cheilitis [Not Recovered/Not Resolved]
  - Oedema peripheral [Not Recovered/Not Resolved]
  - Tongue dry [Not Recovered/Not Resolved]
  - Back pain [Unknown]
  - Blood alkaline phosphatase increased [Recovered/Resolved]
  - Blood bilirubin increased [Recovered/Resolved]
  - Osteoarthritis [Unknown]
  - Lip dry [Not Recovered/Not Resolved]
  - Renal cyst [Unknown]
  - Pneumonia viral [Unknown]
  - Tongue discolouration [Not Recovered/Not Resolved]
  - Bone marrow disorder [Unknown]
  - White blood cell count increased [Unknown]
  - Jaundice [Recovered/Resolved]
  - Liver function test abnormal [Recovered/Resolved]
  - Muscular weakness [Not Recovered/Not Resolved]
  - Pyrexia [Recovered/Resolved]

NARRATIVE: CASE EVENT DATE: 20061027
